FAERS Safety Report 6622013-1 (Version None)
Quarter: 2010Q1

REPORT INFORMATION
  Report Type: 
  Country: None (occurrence: None)
  Receive Date: 20100303
  Receipt Date: 20100128
  Transmission Date: 20100710
  Serious: Yes (Death, Life-Threatening, Hospitalization, Other)
  Sender: FDA-Public Use
  Company Number: CLOF-10507

PATIENT
  Age: 19 Year
  Sex: Male
  Weight: 75 kg

DRUGS (42)
  1. CLOFARABINE (CLOFARABINE) [Suspect]
     Indication: ACUTE LYMPHOCYTIC LEUKAEMIA
     Dosage: 78 MG, QDX5, INTRAVENOUS
     Route: 042
     Dates: start: 20070411, end: 20070415
  2. ETOPOSIDE [Suspect]
     Indication: ACUTE LYMPHOCYTIC LEUKAEMIA
     Dosage: 196 MG, QDX5, INTRAVENOUS
     Route: 042
     Dates: start: 20070411, end: 20070415
  3. CYCLOPHOSPHAMIDE [Suspect]
     Indication: ACUTE LYMPHOCYTIC LEUKAEMIA
     Dosage: 860 MG, QDX5, INTRAVENOUS
     Route: 042
     Dates: start: 20070411, end: 20070415
  4. ALLOPURINOL [Concomitant]
  5. AMPHETAMINE AND DEXTROAMPHETAMINE SALTS [Concomitant]
  6. DAPSONE [Concomitant]
  7. DOCUSATE (DOCUSATE) [Concomitant]
  8. ESCITALOPRAM [Concomitant]
  9. LABETALOL HCL [Concomitant]
  10. RANITIDINE [Concomitant]
  11. MAGNESIUM HYDROXIDE TAB [Concomitant]
  12. CALCIUM CARBONATE [Concomitant]
  13. LANSOPRAZOLE [Concomitant]
  14. MAGNESIUM SULFATE [Concomitant]
  15. MESNA [Concomitant]
  16. HYOSCINE HBR HYT [Concomitant]
  17. DIPHENHYDRAMINE HCL [Concomitant]
  18. METOCLOPRAMIDE [Concomitant]
  19. POLYETHYLENE GLYCOL [Concomitant]
  20. ZOLPIDEM [Concomitant]
  21. AMLODIPINE [Concomitant]
  22. DAPSONE [Concomitant]
  23. FILGRASTIM (FILGRASTIM) [Concomitant]
  24. FLUCONAZOLE [Concomitant]
  25. HEPARIN [Concomitant]
  26. HYDROMORPHONE HCL [Concomitant]
  27. MULTIVITAMIN WITH MINERALS [Concomitant]
  28. ONDANSETRON [Concomitant]
  29. OXYCODONE HCL [Concomitant]
  30. ACYCLOVIR [Concomitant]
  31. CEFTAZIDIME [Concomitant]
  32. SELENIOUS ACID (SELENIOUS ACID) [Concomitant]
  33. URSODIOL [Concomitant]
  34. ESOMEPRAZOLE MAGNESIUM [Concomitant]
  35. CENTAMICIN [Concomitant]
  36. HALOPERIDOL [Concomitant]
  37. LORAZEPAM [Concomitant]
  38. MEROPENEM [Concomitant]
  39. PROPOFOL [Concomitant]
  40. PROPRANOLOL [Concomitant]
  41. HYOSCINE HBR HYT [Concomitant]
  42. TIGECYCLINE (TIGECYCLINE) [Concomitant]

REACTIONS (24)
  - ALANINE AMINOTRANSFERASE INCREASED [None]
  - BLOOD ALKALINE PHOSPHATASE INCREASED [None]
  - BLOOD PHOSPHORUS INCREASED [None]
  - BLOOD SODIUM INCREASED [None]
  - BONE MARROW FAILURE [None]
  - BRONCHOPULMONARY ASPERGILLOSIS [None]
  - CARDIOMEGALY [None]
  - CNS VENTRICULITIS [None]
  - CONVULSION [None]
  - ENCEPHALOPATHY [None]
  - FALL [None]
  - FLUID IMBALANCE [None]
  - GAMMA-GLUTAMYLTRANSFERASE INCREASED [None]
  - HAEMATOCHEZIA [None]
  - HYPERBILIRUBINAEMIA [None]
  - HYPERNATRAEMIA [None]
  - HYPOPHAGIA [None]
  - HYPOXIA [None]
  - MENINGITIS BACTERIAL [None]
  - PLEURAL EFFUSION [None]
  - PNEUMONIA [None]
  - RESPIRATORY DISTRESS [None]
  - STAPHYLOCOCCAL INFECTION [None]
  - VENTRICULAR TACHYCARDIA [None]
